FAERS Safety Report 10413247 (Version 1)
Quarter: 2014Q3

REPORT INFORMATION
  Report Type: Spontaneous
  Country: US (occurrence: None)
  Receive Date: 20140825
  Receipt Date: 20140825
  Transmission Date: 20150326
  Serious: Yes (Hospitalization)
  Sender: FDA-Public Use
  Company Number: 2491950

PATIENT
  Age: 64 Year
  Sex: Male
  Weight: 83 kg

DRUGS (15)
  1. MEMANTINE HYDROCHLORIDE [Concomitant]
     Active Substance: MEMANTINE HYDROCHLORIDE
  2. CYANOCOBALAMIN. [Concomitant]
     Active Substance: CYANOCOBALAMIN
  3. DOCETAXEL [Suspect]
     Active Substance: DOCETAXEL
     Indication: SARCOMA
     Dosage: 158 MG MILLIGRAM(S), CYCLICAL, INTRAVENOUS
     Route: 041
     Dates: start: 20140415
  4. GEMCITABINE [Suspect]
     Active Substance: GEMCITABINE\GEMCITABINE HYDROCHLORIDE
     Indication: SARCOMA
     Dosage: 1800 MG MILLIGRAM(S), CYCLICAL, INTRAVANEOUS
     Route: 042
  5. DONEPEZIL HYDROCHLORIDE. [Concomitant]
     Active Substance: DONEPEZIL HYDROCHLORIDE
  6. ONDANSETRON [Concomitant]
     Active Substance: ONDANSETRON
  7. DICLOFENAC [Concomitant]
     Active Substance: DICLOFENAC
  8. INVESTIGATIONAL DRUG [Suspect]
     Active Substance: INVESTIGATIONAL PRODUCT
     Indication: SARCOMA
     Dosage: 8 MG/KG MILLIGRAM(S)/KILOGRAM(CYCLICAL) INTRAVENOUS DRIP
     Route: 041
     Dates: start: 20140408
  9. MULTIVITAMINS [Concomitant]
     Active Substance: VITAMINS
  10. CITALOPRAM HYDROBROMIDE. [Concomitant]
     Active Substance: CITALOPRAM HYDROBROMIDE
  11. DIPHENHYDRAMINE [Concomitant]
     Active Substance: DIPHENHYDRAMINE
  12. FOLIC ACID. [Concomitant]
     Active Substance: FOLIC ACID
  13. LEVOTHYROXINE SODIUM. [Concomitant]
     Active Substance: LEVOTHYROXINE SODIUM
  14. DEXAMETHASONE. [Concomitant]
     Active Substance: DEXAMETHASONE
  15. PYRIDOXINE HYDROCHLORIDE. [Concomitant]
     Active Substance: PYRIDOXINE HYDROCHLORIDE

REACTIONS (4)
  - Haemoglobin decreased [None]
  - Red blood cell count decreased [None]
  - Pneumonia [None]
  - Lethargy [None]

NARRATIVE: CASE EVENT DATE: 20140730
